FAERS Safety Report 6246596-9 (Version None)
Quarter: 2009Q2

REPORT INFORMATION
  Report Type: 
  Country: None (occurrence: None)
  Receive Date: 20090626
  Receipt Date: 20090616
  Transmission Date: 20091009
  Serious: Yes (Other)
  Sender: FDA-Public Use
  Company Number: CO-PFIZER INC-2009229629

PATIENT
  Age: 70 Year

DRUGS (2)
  1. CHAMPIX [Suspect]
     Indication: SMOKING CESSATION THERAPY
     Route: 048
  2. LEVOTHYROXINE SODIUM [Concomitant]
     Dosage: 50 MG, UNK

REACTIONS (1)
  - HAEMORRHAGE [None]
